FAERS Safety Report 6838983-2 (Version None)
Quarter: 2010Q3

REPORT INFORMATION
  Report Type: 
  Country: None (occurrence: None)
  Receive Date: 20100713
  Receipt Date: 20070921
  Transmission Date: 20110219
  Serious: No
  Sender: FDA-Public Use
  Company Number: US-PFIZER INC-2007046038

PATIENT
  Sex: Female
  Weight: 127.27 kg

DRUGS (8)
  1. CHANTIX [Suspect]
     Indication: SMOKING CESSATION THERAPY
     Dates: start: 20070514, end: 20070531
  2. ALL OTHER THERAPEUTIC PRODUCTS [Concomitant]
  3. PREVACID [Concomitant]
  4. CELEXA [Concomitant]
  5. SEROQUEL [Concomitant]
  6. RISPERDAL [Concomitant]
  7. TRAZODONE HYDROCHLORIDE [Concomitant]
  8. ZOCOR [Concomitant]

REACTIONS (1)
  - DRUG INEFFECTIVE [None]
